FAERS Safety Report 16069978 (Version 2)
Quarter: 2019Q1

REPORT INFORMATION
  Report Type: Spontaneous
  Country: ES (occurrence: ES)
  Receive Date: 20190314
  Receipt Date: 20190320
  Transmission Date: 20190418
  Serious: Yes (Hospitalization, Other)
  Sender: FDA-Public Use
  Company Number: ES-AUROBINDO-AUR-APL-2019-012438

PATIENT

DRUGS (7)
  1. LITHIUM CARBONATE. [Suspect]
     Active Substance: LITHIUM CARBONATE
     Dosage: 1200 MILLIGRAM, ONCE A DAY
     Route: 065
  2. CLOTIAPINE [Suspect]
     Active Substance: CLOTHIAPINE
     Indication: MANIA
     Dosage: 80 MILLIGRAM, ONCE A DAY
     Route: 048
  3. HALOPERIDOL. [Suspect]
     Active Substance: HALOPERIDOL
     Indication: BIPOLAR DISORDER
  4. LITHIUM CARBONATE. [Suspect]
     Active Substance: LITHIUM CARBONATE
     Indication: BIPOLAR DISORDER
     Dosage: 1000 MILLIGRAM, ONCE A DAY
     Route: 065
  5. OLANZAPINE. [Suspect]
     Active Substance: OLANZAPINE
     Indication: MANIA
     Dosage: 30 MILLIGRAM, ONCE A DAY
     Route: 048
  6. OLANZAPINE. [Suspect]
     Active Substance: OLANZAPINE
     Indication: BIPOLAR DISORDER
  7. HALOPERIDOL. [Suspect]
     Active Substance: HALOPERIDOL
     Indication: MANIA
     Dosage: 15 MILLIGRAM, ONCE A DAY
     Route: 048

REACTIONS (14)
  - Nervous system disorder [Unknown]
  - Disorientation [Recovered/Resolved]
  - Hyperreflexia [Unknown]
  - Tremor [Unknown]
  - Drug level above therapeutic [Unknown]
  - Depressed level of consciousness [Recovered/Resolved]
  - Neurotoxicity [Unknown]
  - Ataxia [Unknown]
  - Gait disturbance [Unknown]
  - Dysarthria [Unknown]
  - Muscular weakness [Unknown]
  - Dysstasia [Unknown]
  - Coordination abnormal [Unknown]
  - Toxicity to various agents [Not Recovered/Not Resolved]
